FAERS Safety Report 10031529 (Version 3)
Quarter: 2014Q2

REPORT INFORMATION
  Report Type: Spontaneous
  Country: JP (occurrence: JP)
  Receive Date: 20140324
  Receipt Date: 20140410
  Transmission Date: 20141212
  Serious: Yes (Hospitalization)
  Sender: FDA-Public Use
  Company Number: JP-PFIZER INC-2014080023

PATIENT
  Age: 78 Year
  Sex: Male

DRUGS (1)
  1. ATENOLOL [Suspect]
     Dosage: 12.5 MG, DAILY

REACTIONS (2)
  - Drug level increased [Unknown]
  - Bradycardia [Recovered/Resolved]
